FAERS Safety Report 5984355-2 (Version None)
Quarter: 2008Q4

REPORT INFORMATION
  Report Type: 
  Country: None (occurrence: None)
  Receive Date: 20081208
  Receipt Date: 20081201
  Transmission Date: 20090506
  Serious: Yes (Other)
  Sender: FDA-Public Use
  Company Number: PHEH2008US10723

PATIENT

DRUGS (3)
  1. GLEEVEC [Suspect]
  2. TASIGNA [Suspect]
  3. DASATINIB [Suspect]

REACTIONS (1)
  - CARDIOTOXICITY [None]
